FAERS Safety Report 18851806 (Version 3)
Quarter: 2023Q4

REPORT INFORMATION
  Report Type: Report from Study
  Country: US (occurrence: US)
  Receive Date: 20210205
  Receipt Date: 20231020
  Transmission Date: 20240110
  Serious: Yes (Hospitalization, Other)
  Sender: FDA-Public Use
  Company Number: US-SHIRE-US202021874

PATIENT
  Age: 58 Year
  Sex: Female

DRUGS (2)
  1. HUMAN IMMUNOGLOBULIN G [Suspect]
     Active Substance: HUMAN IMMUNOGLOBULIN G
     Indication: Primary immunodeficiency syndrome
     Dosage: UNK
     Route: 042
  2. HUMAN IMMUNOGLOBULIN G [Suspect]
     Active Substance: HUMAN IMMUNOGLOBULIN G
     Indication: Immunodeficiency common variable

REACTIONS (17)
  - Aortic dissection [Unknown]
  - Cardiac failure congestive [Unknown]
  - Dependence on respirator [Unknown]
  - Hypervolaemia [Unknown]
  - Infusion related reaction [Recovered/Resolved]
  - Chest pain [Unknown]
  - Tachycardia [Unknown]
  - Pyrexia [Recovered/Resolved]
  - Chills [Recovered/Resolved]
  - Fatigue [Not Recovered/Not Resolved]
  - Dyspnoea [Not Recovered/Not Resolved]
  - Asthenia [Unknown]
  - Disturbance in attention [Unknown]
  - Ear infection [Unknown]
  - Immunoglobulins decreased [Unknown]
  - Sleep apnoea syndrome [Unknown]
  - Asthma [Unknown]

NARRATIVE: CASE EVENT DATE: 20200301
